FAERS Safety Report 8263667-6 (Version None)
Quarter: 2012Q2

REPORT INFORMATION
  Report Type: 
  Country: None (occurrence: None)
  Receive Date: 20120405
  Receipt Date: 20120313
  Transmission Date: 20120825
  Serious: Yes (Other)
  Sender: FDA-Public Use
  Company Number: US-ROCHE-1053099

PATIENT
  Sex: Male

DRUGS (3)
  1. PREDNISONE [Concomitant]
  2. ADVAIR DISKUS 100/50 [Concomitant]
     Indication: PRODUCT USED FOR UNKNOWN INDICATION
  3. OMALIZUMAB [Suspect]
     Indication: PRODUCT USED FOR UNKNOWN INDICATION

REACTIONS (4)
  - WHEEZING [None]
  - DYSPNOEA [None]
  - COUGH [None]
  - CHEST DISCOMFORT [None]
